FAERS Safety Report 8320475-5 (Version None)
Quarter: 2012Q2

REPORT INFORMATION
  Report Type: 
  Country: None (occurrence: None)
  Receive Date: 20120426
  Receipt Date: 20120426
  Transmission Date: 20120825
  Serious: No
  Sender: FDA-Public Use
  Company Number: None

PATIENT
  Sex: Male
  Weight: 93.3 kg

DRUGS (2)
  1. RITUXIMAB (MOAB C2B8 ANTI CD20, CHIMERIC) [Suspect]
     Dosage: 780 MG
     Dates: end: 20120319
  2. FLUDARABINE PHOSPHATE [Suspect]
     Dosage: 260 MG
     Dates: end: 20120323

REACTIONS (1)
  - LYMPHOPENIA [None]
